FAERS Safety Report 10679698 (Version 2)
Quarter: 2014Q4

REPORT INFORMATION
  Report Type: Report from Study
  Country: TR (occurrence: TR)
  Receive Date: 20141229
  Receipt Date: 20141229
  Transmission Date: 20150529
  Serious: Yes (Hospitalization)
  Sender: FDA-Public Use
  Company Number: TR-EMD SERONO-7307417

PATIENT
  Age: 8 Year
  Sex: Male
  Weight: 43 kg

DRUGS (3)
  1. PAROL [Suspect]
     Active Substance: ACETAMINOPHEN
     Indication: PYREXIA
  2. PAROL [Suspect]
     Active Substance: ACETAMINOPHEN
     Indication: PAIN
  3. REBIF [Suspect]
     Active Substance: INTERFERON BETA-1A
     Indication: MULTIPLE SCLEROSIS
     Dates: start: 201404

REACTIONS (5)
  - Vomiting [Unknown]
  - Hepatic enzyme increased [Unknown]
  - Decreased appetite [Unknown]
  - Nausea [Unknown]
  - Off label use [Unknown]

NARRATIVE: CASE EVENT DATE: 20140707
